FAERS Safety Report 15449757 (Version 1)
Quarter: 2018Q3

REPORT INFORMATION
  Report Type: Spontaneous
  Country: US (occurrence: US)
  Receive Date: 20180926
  Receipt Date: 20180926
  Transmission Date: 20181010
  Serious: Yes (Hospitalization)
  Sender: FDA-Public Use
  Company Number: None

PATIENT
  Age: 63 Year
  Sex: Female

DRUGS (15)
  1. ASPIRIN. [Concomitant]
     Active Substance: ASPIRIN
  2. LANTUS [Concomitant]
     Active Substance: INSULIN GLARGINE
  3. SPIRIVA [Concomitant]
     Active Substance: TIOTROPIUM BROMIDE MONOHYDRATE
  4. VICTOZA [Suspect]
     Active Substance: LIRAGLUTIDE
     Indication: TYPE 2 DIABETES MELLITUS
     Dosage: ?          OTHER ROUTE:INJECTION?
     Dates: start: 20170502
  5. FUROSEMIDE. [Concomitant]
     Active Substance: FUROSEMIDE
  6. MONTELUKAST [Concomitant]
     Active Substance: MONTELUKAST SODIUM
  7. GABAPENTIN. [Concomitant]
     Active Substance: GABAPENTIN
  8. DOCUSATE [Concomitant]
     Active Substance: DOCUSATE
  9. ALBUTEROL. [Concomitant]
     Active Substance: ALBUTEROL
  10. HUMALOG [Concomitant]
     Active Substance: INSULIN LISPRO
  11. VITAMIN D [Concomitant]
     Active Substance: CHOLECALCIFEROL
  12. PANTIPRAZOLE [Concomitant]
  13. ATROVENT [Concomitant]
     Active Substance: IPRATROPIUM BROMIDE
  14. NIFEDIPINE. [Concomitant]
     Active Substance: NIFEDIPINE
  15. ATORVASTATIN [Concomitant]
     Active Substance: ATORVASTATIN

REACTIONS (2)
  - Chronic obstructive pulmonary disease [None]
  - Cardiac failure congestive [None]

NARRATIVE: CASE EVENT DATE: 20180903
